FAERS Safety Report 4367413-8 (Version None)
Quarter: 2004Q2

REPORT INFORMATION
  Report Type: 
  Country: None (occurrence: None)
  Receive Date: 20040601
  Receipt Date: 20040521
  Transmission Date: 20050107
  Serious: Yes (Hospitalization)
  Sender: FDA-Public Use
  Company Number: JP-JNJFOC-20040504766

PATIENT
  Age: 87 Year
  Sex: Female

DRUGS (8)
  1. LEVOFLOXACIN [Suspect]
     Indication: LOBAR PNEUMONIA
     Route: 042
  2. LEVOFLOXACIN [Suspect]
  3. CLINDAMYCIN HCL [Suspect]
     Indication: LOBAR PNEUMONIA
  4. MOXIFLOXACIN HCL [Suspect]
     Indication: LOBAR PNEUMONIA
     Route: 049
  5. IMIPENEM [Suspect]
     Indication: LOBAR PNEUMONIA
  6. AMIKACIN [Suspect]
     Indication: LOBAR PNEUMONIA
  7. METRONIDAZOLE [Concomitant]
     Indication: PROPHYLAXIS
  8. NEOSYNEPHRINE [Concomitant]
     Indication: HYPOTENSION

REACTIONS (2)
  - SHOCK [None]
  - STAPHYLOCOCCAL INFECTION [None]
